FAERS Safety Report 20626560 (Version 1)
Quarter: 2022Q1

REPORT INFORMATION
  Report Type: Spontaneous
  Country: CN (occurrence: CN)
  Receive Date: 20220323
  Receipt Date: 20220323
  Transmission Date: 20220423
  Serious: Yes (Hospitalization, Other)
  Sender: FDA-Public Use
  Company Number: CN-MLMSERVICE-20220311-3423646-1

PATIENT
  Age: 46 Year
  Sex: Female

DRUGS (3)
  1. MYCOPHENOLATE MOFETIL [Suspect]
     Active Substance: MYCOPHENOLATE MOFETIL
     Indication: Systemic lupus erythematosus
     Route: 048
     Dates: start: 2017
  2. CYCLOPHOSPHAMIDE [Suspect]
     Active Substance: CYCLOPHOSPHAMIDE
     Indication: Systemic lupus erythematosus
     Dosage: CYCLOPHOSPHAMIDE SHOCK THERAPY (EUROPEAN PROTOCOL)
     Dates: start: 2017, end: 2017
  3. PREDNISONE [Suspect]
     Active Substance: PREDNISONE
     Indication: Systemic lupus erythematosus
     Dates: start: 2017

REACTIONS (3)
  - Nocardiosis [Recovered/Resolved]
  - Pneumonia [Recovered/Resolved]
  - Brain abscess [Recovered/Resolved]

NARRATIVE: CASE EVENT DATE: 20180401
